FAERS Safety Report 13607436 (Version 1)
Quarter: 2017Q2

REPORT INFORMATION
  Report Type: Spontaneous
  Country: US (occurrence: US)
  Receive Date: 20170602
  Receipt Date: 20170602
  Transmission Date: 20170830
  Serious: No
  Sender: FDA-Public Use
  Company Number: US-ARBOR PHARMACEUTICALS, LLC-US-2016ARB002456

PATIENT

DRUGS (1)
  1. HORIZANT [Suspect]
     Active Substance: GABAPENTIN ENACARBIL
     Indication: RESTLESS LEGS SYNDROME
     Dosage: 1 DF, QD, IN THE EVENING
     Route: 048
     Dates: start: 201612, end: 201612

REACTIONS (3)
  - Poor quality sleep [Recovered/Resolved]
  - Limb discomfort [Unknown]
  - Muscle spasms [Unknown]

NARRATIVE: CASE EVENT DATE: 201612
